FAERS Safety Report 9493671 (Version 2)
Quarter: 2013Q4

REPORT INFORMATION
  Report Type: Report from Study
  Country: US (occurrence: US)
  Receive Date: 20130902
  Receipt Date: 20131115
  Transmission Date: 20140711
  Serious: Yes (Other)
  Sender: FDA-Public Use
  Company Number: US-ROCHE-1267399

PATIENT
  Sex: Female
  Weight: 72.9 kg

DRUGS (8)
  1. HERCEPTIN [Suspect]
     Indication: BREAST CANCER METASTATIC
     Route: 065
     Dates: start: 201301
  2. XELODA [Suspect]
     Indication: BREAST CANCER METASTATIC
     Route: 065
     Dates: start: 201301
  3. XELODA [Suspect]
     Dosage: 1500MG IN THE MORNING AND 1000MG IN THE EVENING
     Route: 065
  4. LAPATINIB [Concomitant]
     Indication: BREAST CANCER METASTATIC
     Route: 065
     Dates: start: 201301
  5. ERIBULIN [Concomitant]
     Indication: BREAST CANCER METASTATIC
     Route: 065
     Dates: start: 201301
  6. ZOMETA [Concomitant]
     Indication: METASTASES TO BONE
  7. COUMADIN [Concomitant]
  8. TYKERB [Concomitant]

REACTIONS (5)
  - Disease progression [Unknown]
  - Convulsion [Unknown]
  - Ascites [Unknown]
  - Abdominal tenderness [Unknown]
  - Diarrhoea [Unknown]
